FAERS Safety Report 4481158-5 (Version None)
Quarter: 2004Q4

REPORT INFORMATION
  Report Type: 
  Country: None (occurrence: None)
  Receive Date: 20041021
  Receipt Date: 20041007
  Transmission Date: 20050328
  Serious: Yes (Hospitalization)
  Sender: FDA-Public Use
  Company Number: US-MERCK-0410USA01201

PATIENT
  Age: 42 Year
  Sex: Female
  Weight: 102 kg

DRUGS (9)
  1. VIOXX [Suspect]
     Indication: BACK PAIN
     Route: 048
     Dates: start: 20010720, end: 20041004
  2. VIOXX [Suspect]
     Indication: ARTHRALGIA
     Route: 048
     Dates: start: 20010720, end: 20041004
  3. GLUCOVANCE [Concomitant]
     Route: 065
  4. QUININE [Concomitant]
     Route: 065
  5. VICODIN [Concomitant]
     Route: 065
  6. LEXAPRO [Concomitant]
     Route: 065
  7. [THERAPY UNSPECIFIED] [Concomitant]
     Route: 065
  8. NIZATIDINE [Concomitant]
     Route: 065
  9. AVANDIA [Concomitant]
     Route: 065

REACTIONS (4)
  - BLOOD GLUCOSE FLUCTUATION [None]
  - CHEST PAIN [None]
  - HEART VALVE INSUFFICIENCY [None]
  - NAUSEA [None]
